FAERS Safety Report 19842495 (Version 2)
Quarter: 2021Q3

REPORT INFORMATION
  Report Type: Spontaneous
  Country: US (occurrence: US)
  Receive Date: 20210915
  Receipt Date: 20210917
  Transmission Date: 20211014
  Serious: Yes (Other)
  Sender: FDA-Public Use
  Company Number: US-ROCHE-2910653

PATIENT
  Age: 64 Year
  Sex: Male
  Weight: 134 kg

DRUGS (2)
  1. DEXAMETHASONE. [Concomitant]
     Active Substance: DEXAMETHASONE
     Dates: start: 20210509, end: 20210909
  2. ACTEMRA [Suspect]
     Active Substance: TOCILIZUMAB
     Indication: COVID-19
     Route: 040
     Dates: start: 20210609, end: 20210609

REACTIONS (4)
  - Critical illness [Unknown]
  - Staphylococcus test positive [Unknown]
  - Off label use [Unknown]
  - Acute kidney injury [Unknown]

NARRATIVE: CASE EVENT DATE: 20210911
